FAERS Safety Report 23267196 (Version 4)
Quarter: 2024Q4

REPORT INFORMATION
  Report Type: Report from Study
  Country: CN (occurrence: CN)
  Receive Date: 20231206
  Receipt Date: 20241205
  Transmission Date: 20250115
  Serious: Yes (Hospitalization)
  Sender: ROCHE
  Company Number: CN-ROCHE-3465008

PATIENT
  Age: 80 Year
  Sex: Female

DRUGS (4)
  1. POLATUZUMAB VEDOTIN [Suspect]
     Active Substance: POLATUZUMAB VEDOTIN
     Indication: Diffuse large B-cell lymphoma
     Dosage: TEMPORARILY INTERRUPTED STOPPED DATE : 10/NOV/2023?RESTARTED DATE : 16/DEC/2023
     Route: 041
     Dates: start: 20230816
  2. RITUXIMAB [Suspect]
     Active Substance: RITUXIMAB
     Indication: Diffuse large B-cell lymphoma
     Dosage: FREQUENCY: ONCE
     Route: 042
     Dates: start: 20230817, end: 20230817
  3. RITUXIMAB [Suspect]
     Active Substance: RITUXIMAB
     Dosage: FREQUENCY: ONCE
     Route: 042
     Dates: start: 20230913, end: 20230913
  4. RITUXIMAB [Suspect]
     Active Substance: RITUXIMAB
     Dosage: FREQUENCY: ONCE
     Route: 042
     Dates: start: 20231009, end: 20231009

REACTIONS (3)
  - Pulmonary toxicity [Recovered/Resolved]
  - Pneumocystis jirovecii pneumonia [Recovered/Resolved]
  - Anaemia [Recovered/Resolved]

NARRATIVE: CASE EVENT DATE: 20231110
